FAERS Safety Report 19913866 (Version 1)
Quarter: 2021Q4

REPORT INFORMATION
  Report Type: Spontaneous
  Country: NL (occurrence: NL)
  Receive Date: 20211004
  Receipt Date: 20211004
  Transmission Date: 20220304
  Serious: Yes (Other)
  Sender: FDA-Public Use
  Company Number: None

PATIENT
  Sex: Male
  Weight: 105 kg

DRUGS (2)
  1. ATORVASTATIN [Suspect]
     Active Substance: ATORVASTATIN
     Indication: Hypercholesterolaemia
     Dosage: 1 X PER DAY 1 PIECE
     Dates: start: 2014, end: 20210401
  2. INSULIN GLARGINE [Concomitant]
     Active Substance: INSULIN GLARGINE
     Dosage: INJECTION FLUID, 100 UNITS/ML (UNITS PER

REACTIONS (3)
  - Muscle rupture [Unknown]
  - Musculoskeletal stiffness [Recovered/Resolved]
  - Back pain [Unknown]
